FAERS Safety Report 4500153-0 (Version None)
Quarter: 2004Q4

REPORT INFORMATION
  Report Type: 
  Country: None (occurrence: None)
  Receive Date: 20041112
  Receipt Date: 20041103
  Transmission Date: 20050328
  Serious: Yes (Hospitalization)
  Sender: FDA-Public Use
  Company Number: FR-JNJFOC-20041101066

PATIENT
  Age: 88 Year
  Sex: Male

DRUGS (12)
  1. TOPALGIC [Suspect]
     Indication: DRUG USE FOR UNKNOWN INDICATION
     Route: 049
  2. COLCHIMAX [Suspect]
     Route: 049
  3. COLCHIMAX [Suspect]
     Route: 049
  4. PREVISCAN [Concomitant]
     Route: 049
  5. ATENOLOL [Concomitant]
     Route: 049
  6. CO-APROVEL [Concomitant]
     Route: 049
  7. CO-APROVEL [Concomitant]
     Route: 049
  8. ALPRAZOLAM [Concomitant]
     Route: 049
  9. SPASFON [Concomitant]
     Route: 049
  10. SPASFON [Concomitant]
     Route: 049
  11. PIPRAM [Concomitant]
     Route: 049
  12. OFLOCET [Concomitant]
     Route: 049

REACTIONS (11)
  - AGITATION [None]
  - BLOOD GLUCOSE DECREASED [None]
  - BLOOD LACTIC ACID INCREASED [None]
  - BLOOD PH INCREASED [None]
  - BLOOD PRESSURE DECREASED [None]
  - CLONIC CONVULSION [None]
  - DRUG INTERACTION [None]
  - HALLUCINATIONS, MIXED [None]
  - INSOMNIA [None]
  - MALAISE [None]
  - TREMOR [None]
